FAERS Safety Report 12416598 (Version 1)
Quarter: 2016Q2

REPORT INFORMATION
  Report Type: Spontaneous
  Country: CN (occurrence: CN)
  Receive Date: 20160530
  Receipt Date: 20160530
  Transmission Date: 20160815
  Serious: Yes (Other)
  Sender: FDA-Public Use
  Company Number: CN-JNJFOC-20130612647

PATIENT

DRUGS (2)
  1. RISPERDAL [Suspect]
     Active Substance: RISPERIDONE
     Indication: SCHIZOPHRENIA
     Route: 065
  2. RISPERDAL [Suspect]
     Active Substance: RISPERIDONE
     Indication: SCHIZOPHRENIA
     Dosage: 4-6 MG/DAY(MAXIMUM OF 8 MG/DAY)
     Route: 065

REACTIONS (9)
  - Weight increased [Unknown]
  - Headache [Unknown]
  - Akathisia [Unknown]
  - Anxiety [Unknown]
  - Amenorrhoea [Unknown]
  - Liver injury [Unknown]
  - Insomnia [Unknown]
  - Tremor [Unknown]
  - Drug ineffective [Unknown]
